FAERS Safety Report 8122528-3 (Version None)
Quarter: 2012Q1

REPORT INFORMATION
  Report Type: 
  Country: None (occurrence: None)
  Receive Date: 20120208
  Receipt Date: 20120126
  Transmission Date: 20120608
  Serious: Yes (Other)
  Sender: FDA-Public Use
  Company Number: US-ROCHE-1037705

PATIENT
  Age: 55 Year
  Sex: Female

DRUGS (5)
  1. NEXIUM [Concomitant]
  2. ADVAIR DISKUS 100/50 [Concomitant]
  3. XOLAIR [Suspect]
     Indication: PRODUCT USED FOR UNKNOWN INDICATION
  4. ALBUTEROL [Concomitant]
  5. SINGULAIR [Concomitant]

REACTIONS (1)
  - DYSPNOEA [None]
